FAERS Safety Report 4849962-9 (Version None)
Quarter: 2005Q4

REPORT INFORMATION
  Report Type: 
  Country: None (occurrence: None)
  Receive Date: 20051102
  Receipt Date: 20050914
  Transmission Date: 20060501
  Serious: Yes (Life-Threatening)
  Sender: FDA-Public Use
  Company Number: 2005BH001801

PATIENT
  Age: 73 Year
  Sex: Male
  Weight: 68.5 kg

DRUGS (6)
  1. PROCHLORPERAZINE [Suspect]
     Indication: NAUSEA
     Dosage: 30 MG;ONCE;IV
     Route: 042
     Dates: start: 20050831, end: 20050831
  2. KETOROLAC TROMETHAMINE [Suspect]
     Indication: PAIN
     Dosage: 5 MG;ONCE;IV
     Route: 042
     Dates: start: 20050831, end: 20050831
  3. GASTROGRAFIN [Suspect]
     Indication: DRUG USE FOR UNKNOWN INDICATION
     Dosage: 14;PO
     Route: 048
  4. ASACOL [Concomitant]
  5. ASPIRIN [Concomitant]
  6. TYLENOL [Concomitant]

REACTIONS (1)
  - ANAPHYLACTIC REACTION [None]
